FAERS Safety Report 6070443-1 (Version None)
Quarter: 2009Q1

REPORT INFORMATION
  Report Type: 
  Country: None (occurrence: None)
  Receive Date: 20090209
  Receipt Date: 20090130
  Transmission Date: 20090719
  Serious: Yes (Hospitalization)
  Sender: FDA-Public Use
  Company Number: UA-AMGEN-UK231155

PATIENT
  Sex: Male

DRUGS (10)
  1. PANITUMUMAB [Suspect]
     Indication: COLORECTAL CANCER
     Route: 042
     Dates: start: 20070221, end: 20070613
  2. MAGNESIUM SULFATE [Concomitant]
     Route: 030
     Dates: start: 20070624, end: 20070702
  3. FUROSEMIDE [Concomitant]
     Route: 030
     Dates: start: 20070624, end: 20070702
  4. DEXAMETHASONE TAB [Concomitant]
     Route: 030
     Dates: start: 20070624, end: 20070702
  5. PIRACETAM [Concomitant]
     Route: 030
     Dates: start: 20070624, end: 20070702
  6. NICOTINIC ACID [Concomitant]
     Route: 030
     Dates: start: 20070624, end: 20070702
  7. POTASSIUM MAGNESIUM ASPARAGINATE [Concomitant]
     Route: 030
     Dates: start: 20070624, end: 20070702
  8. ACETYLSALICYLIC ACID SRT [Concomitant]
     Route: 030
     Dates: start: 20070624, end: 20070702
  9. BISOPROLOL FUMARATE [Concomitant]
     Route: 030
     Dates: start: 20070624, end: 20070702
  10. METAMIZOLE SODIUM [Concomitant]
     Route: 030
     Dates: start: 20070624, end: 20070702

REACTIONS (1)
  - HEMIPLEGIA [None]
